FAERS Safety Report 8266403-2 (Version None)
Quarter: 2012Q2

REPORT INFORMATION
  Report Type: 
  Country: None (occurrence: None)
  Receive Date: 20120406
  Receipt Date: 20120330
  Transmission Date: 20120825
  Serious: Yes (Other)
  Sender: FDA-Public Use
  Company Number: US-ASTRAZENECA-2010SE21224

PATIENT
  Age: 88 Year
  Sex: Female
  Weight: 60.8 kg

DRUGS (12)
  1. PLAVIX [Concomitant]
  2. AMBUVENT FLUVENT [Concomitant]
     Dosage: AS NEEDED
  3. NEXIUM [Suspect]
     Indication: EROSIVE OESOPHAGITIS
     Route: 048
     Dates: start: 20070101, end: 20110101
  4. LIPITOR [Concomitant]
  5. METOPROLOL TARTRATE [Concomitant]
  6. ASPIRIN [Concomitant]
     Indication: ANGIOPATHY
  7. NEXIUM [Suspect]
     Indication: GASTROOESOPHAGEAL REFLUX DISEASE
     Route: 048
     Dates: start: 20070101, end: 20110101
  8. IRON [Concomitant]
  9. ALLOPURINOL [Concomitant]
  10. DIOVAN [Concomitant]
     Indication: BLOOD PRESSURE ABNORMAL
  11. AMLODIPINE [Concomitant]
     Indication: BLOOD PRESSURE ABNORMAL
  12. ALPRAZOLAM [Concomitant]

REACTIONS (11)
  - ABASIA [None]
  - BACK PAIN [None]
  - OSTEOPOROSIS [None]
  - TREMOR [None]
  - DIVERTICULITIS [None]
  - INTENTIONAL DRUG MISUSE [None]
  - CEREBROVASCULAR ACCIDENT [None]
  - FRACTURE [None]
  - TRANSIENT ISCHAEMIC ATTACK [None]
  - OESOPHAGEAL PAIN [None]
  - DYSSTASIA [None]
